FAERS Safety Report 14977610 (Version 2)
Quarter: 2018Q3

REPORT INFORMATION
  Report Type: Spontaneous
  Country: US (occurrence: US)
  Receive Date: 20180606
  Receipt Date: 20180716
  Transmission Date: 20181010
  Serious: Yes (Hospitalization, Other)
  Sender: FDA-Public Use
  Company Number: US-HORIZON-KRY-0159-2018

PATIENT
  Age: 73 Year
  Sex: Female
  Weight: 108.6 kg

DRUGS (10)
  1. TENORMIN [Concomitant]
     Active Substance: ATENOLOL
     Dosage: 1 TAB PO DAILY
     Route: 048
  2. PREDNISONE. [Concomitant]
     Active Substance: PREDNISONE
  3. SOLU?MEDROL [Concomitant]
     Active Substance: METHYLPREDNISOLONE SODIUM SUCCINATE
     Indication: PREMEDICATION
     Route: 042
  4. NORVASC [Concomitant]
     Active Substance: AMLODIPINE BESYLATE
     Dosage: 1 TAB PO DAILY
     Route: 048
  5. COLCRYS [Concomitant]
     Active Substance: COLCHICINE
     Indication: GOUT
     Dosage: 0.6MG PO DAILY PRN FLARE
     Route: 048
  6. LIPITOR [Concomitant]
     Active Substance: ATORVASTATIN CALCIUM
     Dosage: 1 TAB PO DAILY
     Route: 048
  7. BENADRYL [Concomitant]
     Active Substance: DIPHENHYDRAMINE HYDROCHLORIDE
     Indication: PREMEDICATION
     Route: 042
  8. TYLENOL [Concomitant]
     Active Substance: ACETAMINOPHEN
     Indication: PREMEDICATION
     Route: 048
  9. KRYSTEXXA [Suspect]
     Active Substance: PEGLOTICASE
     Indication: GOUT
     Dates: start: 20180517
  10. ASPIRIN. [Concomitant]
     Active Substance: ASPIRIN
     Dosage: CHEW 81MG PO DAILY
     Route: 048

REACTIONS (9)
  - Plasmapheresis [Recovered/Resolved]
  - Acute kidney injury [Unknown]
  - Haemolytic anaemia [Recovered/Resolved]
  - Troponin increased [Unknown]
  - Leukocytosis [Unknown]
  - Cardiac failure congestive [Unknown]
  - Packed red blood cell transfusion [Recovered/Resolved]
  - Cardiomyopathy [Unknown]
  - Bronchospasm [Unknown]

NARRATIVE: CASE EVENT DATE: 201805
